FAERS Safety Report 5491921-X (Version None)
Quarter: 2007Q4

REPORT INFORMATION
  Report Type: 
  Country: None (occurrence: None)
  Receive Date: 20071022
  Receipt Date: 20071022
  Transmission Date: 20080405
  Serious: Yes (Other)
  Sender: FDA-Public Use
  Company Number: A0688883A

PATIENT
  Age: 59 Year
  Sex: Female

DRUGS (1)
  1. TUMS E-X TABLETS [Suspect]
     Indication: DRUG USE FOR UNKNOWN INDICATION
     Route: 048

REACTIONS (2)
  - NEPHROLITHIASIS [None]
  - THERAPEUTIC RESPONSE UNEXPECTED [None]
